FAERS Safety Report 4799741-6 (Version None)
Quarter: 2005Q4

REPORT INFORMATION
  Report Type: 
  Country: None (occurrence: None)
  Receive Date: 20051011
  Receipt Date: 20051011
  Transmission Date: 20060501
  Serious: Yes (Other)
  Sender: FDA-Public Use
  Company Number: None

PATIENT
  Age: 68 Month
  Sex: Male
  Weight: 84 kg

DRUGS (11)
  1. BORTEZOMIB [Suspect]
     Indication: MULTIPLE MYELOMA
     Dosage: 2 MG IV PUSH
     Dates: start: 20050917
  2. BORTEZOMIB [Suspect]
     Indication: MULTIPLE MYELOMA
     Dosage: 2 MG IV PUSH
     Dates: start: 20050920
  3. BORTEZOMIB [Suspect]
     Indication: MULTIPLE MYELOMA
     Dosage: 2 MG IV PUSH
     Dates: start: 20050924
  4. BORTEZOMIB [Suspect]
     Indication: MULTIPLE MYELOMA
     Dosage: 2 MG IV PUSH
     Dates: start: 20050927
  5. HEPARIN [Concomitant]
  6. FUROSEMIDE [Concomitant]
  7. WARFARIN [Concomitant]
  8. FENTANYL [Concomitant]
  9. ZOCOR [Concomitant]
  10. METOPROLOL [Concomitant]
  11. DIGOXIN [Concomitant]

REACTIONS (1)
  - THROMBOCYTOPENIA [None]
